FAERS Safety Report 12834560 (Version 2)
Quarter: 2016Q4

REPORT INFORMATION
  Report Type: Spontaneous
  Country: AR (occurrence: AR)
  Receive Date: 20161010
  Receipt Date: 20161107
  Transmission Date: 20170207
  Serious: Yes (Other)
  Sender: FDA-Public Use
  Company Number: AR-PFIZER INC-2016453284

PATIENT
  Age: 72 Year
  Sex: Male

DRUGS (1)
  1. INLYTA [Suspect]
     Active Substance: AXITINIB
     Indication: RENAL CANCER
     Dosage: 5 MG MONDAYS, TUESDAYS, THURSDAYS AND FRIDAYS
     Dates: start: 20160505

REACTIONS (1)
  - Muscle hypertrophy [Recovering/Resolving]

NARRATIVE: CASE EVENT DATE: 20160914
